FAERS Safety Report 7685935-9 (Version None)
Quarter: 2011Q3

REPORT INFORMATION
  Report Type: 
  Country: None (occurrence: None)
  Receive Date: 20110816
  Receipt Date: 20110801
  Transmission Date: 20111222
  Serious: Yes (Hospitalization, Other)
  Sender: FDA-Public Use
  Company Number: PHHY2011JP45509

PATIENT
  Age: 79 Year
  Sex: Male

DRUGS (3)
  1. AMLODIPINE [Concomitant]
     Dosage: 5 MG, UNK
     Route: 048
     Dates: start: 20110519
  2. DIOVAN [Suspect]
     Indication: HYPERTENSION
     Dosage: 120 MG, DAILY
     Route: 048
     Dates: end: 20110517
  3. URSO 250 [Suspect]
     Indication: HYPERTENSION
     Dosage: 600 MG, DAILY
     Route: 048
     Dates: end: 20110517

REACTIONS (1)
  - PNEUMONIA [None]
